FAERS Safety Report 23365032 (Version 1)
Quarter: 2024Q1

REPORT INFORMATION
  Report Type: Spontaneous
  Country: US (occurrence: US)
  Receive Date: 20240104
  Receipt Date: 20240104
  Transmission Date: 20240410
  Serious: Yes (Other)
  Sender: FDA-Public Use
  Company Number: US-ABBVIE-5570120

PATIENT
  Age: 71 Year
  Sex: Female

DRUGS (1)
  1. RESTASIS [Suspect]
     Active Substance: CYCLOSPORINE
     Indication: Sjogren^s syndrome
     Route: 047

REACTIONS (11)
  - Cataract [Unknown]
  - Eye irritation [Unknown]
  - Ocular hyperaemia [Unknown]
  - Rash papular [Unknown]
  - Vision blurred [Unknown]
  - Eye infection [Unknown]
  - Cataract [Unknown]
  - Eye disorder [Unknown]
  - Periorbital swelling [Unknown]
  - Eye pruritus [Unknown]
  - Product use in unapproved indication [Unknown]

NARRATIVE: CASE EVENT DATE: 20230701
